FAERS Safety Report 5442454-8 (Version None)
Quarter: 2007Q3

REPORT INFORMATION
  Report Type: 
  Country: None (occurrence: None)
  Receive Date: 20070830
  Receipt Date: 20070820
  Transmission Date: 20080115
  Serious: Yes (Death)
  Sender: FDA-Public Use
  Company Number: 2007US001982

PATIENT
  Age: 52 Year
  Sex: Female

DRUGS (1)
  1. PROGRAF [Suspect]
     Indication: DRUG USE FOR UNKNOWN INDICATION
     Dosage: 2 MG, BID, ORAL
     Route: 048
     Dates: start: 20070530

REACTIONS (2)
  - MALIGNANT NEOPLASM PROGRESSION [None]
  - MYELOMA RECURRENCE [None]
